FAERS Safety Report 5541682-0 (Version None)
Quarter: 2007Q4

REPORT INFORMATION
  Report Type: 
  Country: None (occurrence: None)
  Receive Date: 20071210
  Receipt Date: 20071203
  Transmission Date: 20080405
  Serious: Yes (Other)
  Sender: FDA-Public Use
  Company Number: PHEH2005US05719

PATIENT
  Age: 42 Year
  Sex: Male
  Weight: 78.458 kg

DRUGS (12)
  1. ZOMETA [Suspect]
     Indication: MULTIPLE MYELOMA
     Dosage: 4 MG MONTHLY
     Route: 042
     Dates: start: 20020101
  2. MARIJUANA [Concomitant]
  3. VINCRISTINE + ADRIAMYCIN + DEXAMETHASONE [Concomitant]
     Indication: MULTIPLE MYELOMA
     Dates: end: 20020410
  4. MELPHALAN [Concomitant]
     Indication: MULTIPLE MYELOMA
     Dates: start: 20020515
  5. WELLBUTRIN [Concomitant]
     Indication: DEPRESSION
     Dosage: 150 MG, QD
     Route: 048
  6. NEXIUM [Concomitant]
     Dosage: 40 MG, QHS
     Route: 048
  7. SYNTHROID [Concomitant]
     Indication: HYPOTHYROIDISM
     Dosage: 150 MCG QD
     Route: 048
  8. LOPRESSOR [Concomitant]
     Indication: HYPERTENSION
     Dosage: 12.5 MG, QD
     Route: 048
  9. VALTREX [Concomitant]
     Dosage: 500 MG, TID
     Route: 048
  10. PERCOCET [Concomitant]
  11. NEURONTIN [Concomitant]
     Dosage: 300 MG, TID
     Route: 048
  12. ATIVAN [Concomitant]

REACTIONS (22)
  - ALVEOLOPLASTY [None]
  - ANHEDONIA [None]
  - ANXIETY [None]
  - BONE DEBRIDEMENT [None]
  - BONE DISORDER [None]
  - CANDIDIASIS [None]
  - CARDIOMYOPATHY [None]
  - CATHETERISATION CARDIAC [None]
  - DECREASED INTEREST [None]
  - DENTAL CARIES [None]
  - DENTAL OPERATION [None]
  - DENTAL TREATMENT [None]
  - ENTEROCOCCAL INFECTION [None]
  - ESCHERICHIA INFECTION [None]
  - GENERAL PHYSICAL HEALTH DETERIORATION [None]
  - LEFT VENTRICULAR HYPERTROPHY [None]
  - OSTEOMYELITIS [None]
  - OSTEONECROSIS [None]
  - PAIN IN JAW [None]
  - PERIODONTITIS [None]
  - STREPTOCOCCAL INFECTION [None]
  - TOOTH EXTRACTION [None]
